FAERS Safety Report 14782174 (Version 1)
Quarter: 2018Q2

REPORT INFORMATION
  Report Type: Spontaneous
  Country: NL (occurrence: NL)
  Receive Date: 20180420
  Receipt Date: 20180420
  Transmission Date: 20180711
  Serious: Yes (Death, Other)
  Sender: FDA-Public Use
  Company Number: NL-AXELLIA-001593

PATIENT
  Age: 55 Year
  Sex: Female

DRUGS (3)
  1. MICAFUNGIN/MICAFUNGIN SODIUM [Concomitant]
     Dosage: 100 MG, QD
  2. VORICONAZOLE. [Suspect]
     Active Substance: VORICONAZOLE
     Indication: ASPERGILLUS INFECTION
     Dosage: 200 MG, BID ?DOSE 400 MG DAILY
     Route: 042
  3. AMBISOME [Suspect]
     Active Substance: AMPHOTERICIN B
     Indication: ASPERGILLUS INFECTION
     Dosage: 3 MG/KG, Q24HR
     Route: 042

REACTIONS (1)
  - Drug ineffective [Fatal]
